FAERS Safety Report 8339659-5 (Version None)
Quarter: 2012Q2

REPORT INFORMATION
  Report Type: 
  Country: None (occurrence: None)
  Receive Date: 20120507
  Receipt Date: 20120503
  Transmission Date: 20120825
  Serious: Yes (Hospitalization, Other)
  Sender: FDA-Public Use
  Company Number: PHEH2012US009369

PATIENT
  Sex: Male

DRUGS (10)
  1. TRILIPIX [Concomitant]
     Dosage: UNK UKN, UNK
  2. WELLBUTRIN [Concomitant]
     Dosage: UNK UKN, UNK
  3. TRAMADOL HYDROCHLORIDE [Concomitant]
     Dosage: UNK UKN, UNK
  4. TEKTURNA [Suspect]
     Dosage: 150 MG, ONCE A DAY
     Dates: end: 20100901
  5. FISH OIL [Concomitant]
     Dosage: UNK UKN, UNK
  6. LYRICA [Concomitant]
     Dosage: UNK UKN, UNK
  7. PRILOSEC [Concomitant]
     Dosage: UNK UKN, UNK
  8. FLEXERIL [Concomitant]
     Dosage: UNK UKN, UNK
  9. ANTINAL [Concomitant]
     Dosage: UNK UKN, UNK
  10. VITAMIN D [Concomitant]
     Dosage: UNK UKN, UNK

REACTIONS (5)
  - RENAL FAILURE [None]
  - FATIGUE [None]
  - SUICIDAL IDEATION [None]
  - SYNCOPE [None]
  - GAIT DISTURBANCE [None]
